FAERS Safety Report 9664369 (Version 3)
Quarter: 2013Q4

REPORT INFORMATION
  Report Type: Report from Study
  Country: US (occurrence: US)
  Receive Date: 20131101
  Receipt Date: 20131121
  Transmission Date: 20140711
  Serious: Yes (Hospitalization, Other)
  Sender: FDA-Public Use
  Company Number: US-ACTELION-A-US2011-49247

PATIENT
  Age: 65 Year
  Sex: Female

DRUGS (24)
  1. TRACLEER [Suspect]
     Indication: PULMONARY ARTERIAL HYPERTENSION
     Dosage: 125 MG, BID
     Route: 048
     Dates: start: 20040406
  2. COUMADIN [Concomitant]
  3. ASPIRIN [Concomitant]
     Dosage: 81 MG, UNK
  4. LASIX [Concomitant]
     Dosage: 80 MG, BID
  5. GABAPENTIN [Concomitant]
     Dosage: 300 MG, BID
  6. CARAFATE [Concomitant]
     Dosage: 1 GR, QID
  7. COZAAR [Concomitant]
     Dosage: 100 MG, QD
  8. VICTOZA [Concomitant]
     Dosage: 1.2 MG, UNK
  9. REVATIO [Concomitant]
     Dosage: 20 MG, TID
  10. REQUIP [Concomitant]
     Dosage: 15 MG, UNK
  11. ZOCOR [Concomitant]
     Dosage: 40 MG, UNK
  12. ZAROXOLYN [Concomitant]
     Dosage: 10 MG, TID
  13. MAGNESIUM [Concomitant]
     Dosage: 500 MG, UNK
  14. FOLIC ACID [Concomitant]
     Dosage: 400 MG, UNK
  15. LANTUS [Concomitant]
     Dosage: 50 USP UNIT, BID
  16. HUMIRA [Concomitant]
     Dosage: 40 MG, UNK
  17. ZOLOFT [Concomitant]
     Dosage: 150 MG, UNK
  18. TOPROL [Concomitant]
     Dosage: 100 MG, BID
  19. ALDACTONE [Concomitant]
     Dosage: 25 MG, UNK
  20. NEXIUM [Concomitant]
     Dosage: 40 MG, BID
  21. POTASSIUM [Concomitant]
     Dosage: 60 MEQ, BID
  22. VITAMIN C [Concomitant]
     Dosage: 500 MG, UNK
  23. SYMBICORT [Concomitant]
     Dosage: 2 PUFF, BID
  24. ALBUTEROL [Concomitant]
     Dosage: UNK, PRN

REACTIONS (5)
  - Psychogenic seizure [Unknown]
  - Grand mal convulsion [Recovered/Resolved]
  - Myoclonus [Not Recovered/Not Resolved]
  - Chest pain [Recovered/Resolved]
  - Sinusitis [Unknown]
